FAERS Safety Report 23653710 (Version 1)
Quarter: 2024Q1

REPORT INFORMATION
  Report Type: Spontaneous
  Country: GB (occurrence: GB)
  Receive Date: 20240320
  Receipt Date: 20240320
  Transmission Date: 20240410
  Serious: Yes (Other)
  Sender: FDA-Public Use
  Company Number: None

PATIENT

DRUGS (6)
  1. LANSOPRAZOLE [Suspect]
     Active Substance: LANSOPRAZOLE
     Indication: Product used for unknown indication
     Dosage: AT NIGHT
  2. CALCIUM CARBONATE\CHOLECALCIFEROL [Concomitant]
     Active Substance: CALCIUM CARBONATE\CHOLECALCIFEROL
  3. ASPIRIN [Concomitant]
     Active Substance: ASPIRIN
     Dosage: IN THE MORNING
  4. MEMANTINE [Concomitant]
     Active Substance: MEMANTINE
     Dosage: AT NIGHT
  5. ATORVASTATIN [Concomitant]
     Active Substance: ATORVASTATIN
     Dosage: AT NIGHT
  6. FOLIC ACID [Concomitant]
     Active Substance: FOLIC ACID
     Dosage: IN THE MORNING

REACTIONS (1)
  - Femoral neck fracture [Recovered/Resolved]
